FAERS Safety Report 9964086 (Version 2)
Quarter: 2014Q3

REPORT INFORMATION
  Report Type: Spontaneous
  Country: US (occurrence: US)
  Receive Date: 20140305
  Receipt Date: 20140925
  Transmission Date: 20150326
  Serious: Yes (Hospitalization, Other)
  Sender: FDA-Public Use
  Company Number: US-GLAXOSMITHKLINE-B0974259A

PATIENT
  Age: 29 Year
  Sex: Female

DRUGS (3)
  1. WELLBUTRIN [Suspect]
     Active Substance: BUPROPION HYDROCHLORIDE
     Indication: LIBIDO DECREASED
     Route: 065
  2. TRAZODONE [Suspect]
     Active Substance: TRAZODONE HYDROCHLORIDE
     Indication: LIBIDO DECREASED
  3. CONTRACEPTIVE [Concomitant]
     Active Substance: UNSPECIFIED INGREDIENT
     Route: 048

REACTIONS (4)
  - Vulvovaginal swelling [Unknown]
  - Priapism [Recovered/Resolved]
  - Genital pain [Unknown]
  - Oedema genital [Unknown]
